FAERS Safety Report 15354483 (Version 4)
Quarter: 2021Q4

REPORT INFORMATION
  Report Type: Spontaneous
  Country: FR (occurrence: FR)
  Receive Date: 20180906
  Receipt Date: 20211216
  Transmission Date: 20220303
  Serious: Yes (Death, Life-Threatening, Other)
  Sender: FDA-Public Use
  Company Number: FR-ADIENNEP-2018AD000335

PATIENT
  Age: 26 Year
  Sex: Female
  Weight: 97 kg

DRUGS (13)
  1. CYCLOPHOSPHAMIDE [Suspect]
     Active Substance: CYCLOPHOSPHAMIDE
     Indication: Prophylaxis against graft versus host disease
     Dosage: CYCLE 1 DAY 3, 50 MG/KG, ENDOXAN 4400 MG + 5% SODIUM CHLORIDE 500 ML
     Route: 041
     Dates: start: 20180603, end: 20180604
  2. MESNA [Suspect]
     Active Substance: MESNA
     Indication: Product used for unknown indication
     Dosage: ON DAY 3, 4 AND 5; 9 MG/KG
     Route: 041
     Dates: start: 20180603, end: 20180605
  3. SODIUM CHLORIDE [Suspect]
     Active Substance: SODIUM CHLORIDE
     Indication: Medication dilution
     Dosage: CYCLE 1 DAY 3, ENDOXAN 4400 MG + 5% SODIUM CHLORIDE 500 ML
     Route: 041
     Dates: start: 20180603, end: 20180604
  4. SODIUM CHLORIDE [Suspect]
     Active Substance: SODIUM CHLORIDE
     Dosage: CONDITIONING REGIMEN; DAY 7 AND 6; THIOTEPA 440 MG + 0.9% SODIUM CHLORIDE 500 ML
     Route: 041
     Dates: start: 20180524, end: 20180525
  5. SODIUM CHLORIDE [Suspect]
     Active Substance: SODIUM CHLORIDE
     Dosage: CONDITIONING REGIMEN; DAY 5, 4, 3 AND 2; FLUDARABINE 78 MG + 0.9% SODIUM CHLORIDE 100 ML
     Route: 041
     Dates: start: 20180526, end: 20180529
  6. SODIUM CHLORIDE [Suspect]
     Active Substance: SODIUM CHLORIDE
     Dosage: CONDITIONING REGIMEN; DAY 5, 4 AND 3; BUSILVEX 281.5 MG + 0.9% SODIUM CHLORIDE 563 ML
     Route: 041
     Dates: start: 20180526, end: 20180528
  7. CYCLOSPORINE [Suspect]
     Active Substance: CYCLOSPORINE
     Indication: Prophylaxis against graft versus host disease
     Dosage: TARGET 200 TO 300 NG/L, FROM DAY 5 (24 HOURS AFTER LAST DOSE OF CYCLOPHOSPHAMIDE), DECREASE FROM 3 M
     Route: 042
     Dates: start: 20180605
  8. CELLCEPT [Suspect]
     Active Substance: MYCOPHENOLATE MOFETIL
     Indication: Prophylaxis against graft versus host disease
     Dosage: FROM DAY 5 (24 HOURS AFTER LAST DOSE OF CYCLOPHOSPHAMIDE) UNTIL DAY 35, MAX: 1G, TID
     Route: 042
     Dates: start: 20180605
  9. THIOTEPA [Suspect]
     Active Substance: THIOTEPA
     Indication: Stem cell transplant
     Dosage: CONDITIONING REGIMEN; DAY 7 AND 6; 5 MG/KG; THIOTEPA 440 MG + 0.9% SODIUM CHLORIDE 500 ML
     Route: 041
     Dates: start: 20180524, end: 20180525
  10. FLUDARABINE [Suspect]
     Active Substance: FLUDARABINE PHOSPHATE
     Indication: Stem cell transplant
     Dosage: CONDITIONING REGIMEN; DAY 5, 4, 3 AND 2; 40 MG/M2; FLUDARABINE 78 MG + 0.9% SODIUM CHLORIDE 100 ML
     Route: 041
     Dates: start: 20180526, end: 20180529
  11. BUSULFAN [Suspect]
     Active Substance: BUSULFAN
     Indication: Stem cell transplant
     Dosage: CONDITIONING REGIMEN; DAY 5, 4 AND 3; 3.2 MG/KG, BUSILVEX 281.5 MG + 0.9% SODIUM CHLORIDE 563 ML
     Route: 041
     Dates: start: 20180526, end: 20180528
  12. URSODIOL [Suspect]
     Active Substance: URSODIOL
     Indication: Prophylaxis against graft versus host disease
     Route: 065
  13. GRANULOCYTE COLONY-STIMULATING FACTOR NOS [Concomitant]
     Active Substance: GRANULOCYTE COLONY-STIMULATING FACTOR NOS
     Indication: Prophylaxis
     Route: 065

REACTIONS (21)
  - Myocarditis [Fatal]
  - Febrile bone marrow aplasia [Unknown]
  - Peritonitis [Unknown]
  - Pneumothorax [Recovered/Resolved]
  - Sepsis [Unknown]
  - Disease recurrence [Unknown]
  - Pericardial effusion [Recovered/Resolved]
  - Cardiogenic shock [Unknown]
  - Renal failure [Unknown]
  - Pneumonia staphylococcal [Unknown]
  - Pyelonephritis [Unknown]
  - Dyspnoea [Unknown]
  - Atelectasis [Unknown]
  - Pelvic fluid collection [Unknown]
  - Weight increased [Unknown]
  - Diplopia [Unknown]
  - Hepatomegaly [Unknown]
  - Urinary tract infection [Unknown]
  - Candida infection [Unknown]
  - Mucosal inflammation [Unknown]
  - Nausea [Unknown]

NARRATIVE: CASE EVENT DATE: 20180601
